FAERS Safety Report 6773101-0 (Version None)
Quarter: 2010Q2

REPORT INFORMATION
  Report Type: 
  Country: None (occurrence: None)
  Receive Date: 20100616
  Receipt Date: 20100611
  Transmission Date: 20101027
  Serious: Yes (Hospitalization)
  Sender: FDA-Public Use
  Company Number: FR-WYE-G06189910

PATIENT
  Sex: Male

DRUGS (10)
  1. NOVATREX [Suspect]
     Indication: PEMPHIGOID
     Dosage: 12.5 MG TOTAL WEEKLY
     Route: 048
     Dates: start: 20080101, end: 20080304
  2. LASIX [Concomitant]
     Route: 048
  3. ZOLPIDEM [Concomitant]
     Route: 048
  4. DIPROLENE [Concomitant]
     Dosage: 2 CUTANEOUS APPLICATION DAILY
     Route: 003
     Dates: start: 20080101
  5. AERIUS [Concomitant]
     Route: 048
     Dates: end: 20080301
  6. ATARAX [Concomitant]
     Route: 048
     Dates: end: 20080301
  7. DI-ANTALVIC [Concomitant]
     Route: 048
     Dates: end: 20080301
  8. SPECIAFOLDINE [Concomitant]
     Route: 048
     Dates: start: 20080101
  9. CORDARONE [Suspect]
     Indication: ATRIAL FIBRILLATION
     Dosage: 1 TABLET DAILY 5/7 DAYS
     Route: 048
     Dates: end: 20080306
  10. INIPOMP [Concomitant]
     Route: 048

REACTIONS (2)
  - CARDIAC FAILURE [None]
  - PNEUMONIA [None]
